FAERS Safety Report 7608047-9 (Version None)
Quarter: 2011Q3

REPORT INFORMATION
  Report Type: 
  Country: None (occurrence: None)
  Receive Date: 20110714
  Receipt Date: 20110701
  Transmission Date: 20111222
  Serious: Yes (Other)
  Sender: FDA-Public Use
  Company Number: US-JNJFOC-20110703984

PATIENT
  Age: 80 Year
  Sex: Female
  Weight: 106.14 kg

DRUGS (9)
  1. WELLBUTRIN [Concomitant]
     Dosage: 1 DAILY, 5 YEARS
     Route: 065
  2. SIMVASTATIN [Concomitant]
     Indication: BLOOD CHOLESTEROL INCREASED
     Dosage: 1 DAILY, STARTED 5 YEARS AGO
     Route: 065
  3. PAROXETINE HCL [Concomitant]
     Indication: DEPRESSION
     Dosage: 2 DAILY, STARTED YEARS AGO
     Route: 065
  4. ATENOLOL [Concomitant]
     Dosage: 2 TWICE DAILY, 5 YEARS
     Route: 065
  5. LORATADINE [Concomitant]
     Dosage: 1 DAILY, YEARS
     Route: 065
  6. ACETAMINOPHEN [Suspect]
     Indication: ARTHRITIS
     Route: 048
  7. ACETAMINOPHEN [Suspect]
     Route: 048
  8. LOSARTAN POTASSIUM [Concomitant]
     Dosage: 1 TWICE DAILY. 4 YEARS
     Route: 065
  9. ASPIRIN [Concomitant]
     Dosage: 1 DAILY, 3 YEARS
     Route: 065

REACTIONS (1)
  - DELUSION [None]
